FAERS Safety Report 8060710 (Version 4)
Quarter: 2012Q4

REPORT INFORMATION
  Report Type: 
  Country: US (occurrence: US)
  Receive Date: 20110729
  Receipt Date: 20120919
  Transmission Date: 20130627
  Serious: No
  Sender: FDA-Public Use
  Company Number: US-ASTRAZENECA-2010SE18611

PATIENT
  Age: 83 Year
  Sex: Female

DRUGS (4)
  1. PULMICORT FLEXHALER [Suspect]
     Route: 055
  2. NEXIUM [Suspect]
     Route: 048
  3. DIOVAN [Concomitant]
  4. VERAPAMIL [Concomitant]

REACTIONS (4)
  - Visual impairment [Unknown]
  - Dyspepsia [Unknown]
  - Visual impairment [Unknown]
  - Speech disorder [Unknown]
